FAERS Safety Report 7162060-7 (Version None)
Quarter: 2010Q4

REPORT INFORMATION
  Report Type: 
  Country: None (occurrence: None)
  Receive Date: 20101215
  Receipt Date: 20090727
  Transmission Date: 20110411
  Serious: Yes (Hospitalization)
  Sender: FDA-Public Use
  Company Number: US-PFIZER INC-2009246240

PATIENT
  Sex: Female
  Weight: 89.796 kg

DRUGS (10)
  1. PREGABALIN [Suspect]
     Indication: FIBROMYALGIA
     Dosage: 450 MG DAILY
     Route: 048
     Dates: start: 20090408, end: 20090510
  2. PREGABALIN [Suspect]
     Dosage: 100 MG, 2X/DAY
     Route: 048
     Dates: start: 20081108, end: 20090324
  3. ACCOLATE [Concomitant]
     Indication: ASTHMA
     Dosage: 20 MG, 2X/DAY
     Route: 048
     Dates: start: 19840101
  4. ADVAIR [Concomitant]
     Indication: ASTHMA
     Dosage: 1 DF, 2X/DAY
     Dates: start: 19840101
  5. ESTRACE [Concomitant]
     Indication: HORMONE REPLACEMENT THERAPY
     Dosage: 1 DF, 1X/DAY
     Route: 048
     Dates: start: 20010101
  6. ARMOUR THYROID [Concomitant]
     Indication: HYPOTHYROIDISM
     Dosage: 20 MG, 1X/DAY
     Route: 048
     Dates: start: 19690101
  7. COZAAR [Concomitant]
     Indication: HYPERTENSION
     Dosage: 100 UNK, 1X/DAY
     Route: 048
     Dates: start: 20070101
  8. UNIPHYL [Concomitant]
     Indication: ASTHMA
     Dosage: 400 MG, 2X/DAY
     Route: 048
     Dates: start: 19840101
  9. CHONDROITIN/GLUCOSAMINE [Concomitant]
     Indication: OSTEOARTHRITIS
     Dosage: 1 DF, 1X/DAY
     Route: 048
     Dates: start: 20010101
  10. TYLENOL (CAPLET) [Concomitant]
     Indication: HEADACHE
     Dosage: 650 MG, AS NEEDED
     Route: 048
     Dates: start: 19920101

REACTIONS (1)
  - MYOCARDIAL INFARCTION [None]
